FAERS Safety Report 17746312 (Version 2)
Quarter: 2020Q2

REPORT INFORMATION
  Report Type: Spontaneous
  Country: RU (occurrence: RU)
  Receive Date: 20200505
  Receipt Date: 20200518
  Transmission Date: 20200714
  Serious: Yes (Life-Threatening, Other)
  Sender: FDA-Public Use
  Company Number: RU-SHIRE-RU202014874

PATIENT

DRUGS (2)
  1. FEIBA NF [Suspect]
     Active Substance: ANTI-INHIBITOR COAGULANT COMPLEX
     Indication: FACTOR VIII DEFICIENCY
     Dosage: 500 INTERNATIONAL UNIT, 1X/DAY:QD
     Route: 040
     Dates: start: 201906, end: 202004
  2. COAGIL-VII [Suspect]
     Active Substance: COAGULATION FACTOR VIIA RECOMBINANT HUMAN
     Indication: FACTOR VIII DEFICIENCY
     Dosage: 120000 INTERNATIONAL UNIT, 1X/DAY:QD
     Route: 040
     Dates: start: 201906, end: 202004

REACTIONS (4)
  - Poor venous access [Unknown]
  - Factor VIII inhibition [Unknown]
  - Haemorrhage [Unknown]
  - Drug ineffective [Recovered/Resolved]

NARRATIVE: CASE EVENT DATE: 201906
